FAERS Safety Report 6725327-X (Version None)
Quarter: 2010Q2

REPORT INFORMATION
  Report Type: 
  Country: None (occurrence: None)
  Receive Date: 20100514
  Receipt Date: 20100504
  Transmission Date: 20101027
  Serious: Yes (Other)
  Sender: FDA-Public Use
  Company Number: DE-JNJFOC-20100502623

PATIENT

DRUGS (1)
  1. INFLIXIMAB [Suspect]
     Indication: COLITIS ULCERATIVE
     Dosage: WEEKS 0,2, AND 6 AND THEN EVERY 8 WEEKS IF TOLERATED
     Route: 042

REACTIONS (1)
  - PNEUMONIA HERPES VIRAL [None]
